FAERS Safety Report 8952542 (Version 2)
Quarter: 2012Q4

REPORT INFORMATION
  Report Type: 
  Country: DE (occurrence: DE)
  Receive Date: 20121205
  Receipt Date: 20121219
  Transmission Date: 20130627
  Serious: Yes (Hospitalization)
  Sender: FDA-Public Use
  Company Number: DE-GILEAD-2012-0065670

PATIENT
  Age: 77 Year
  Sex: Male

DRUGS (15)
  1. RANOLAZINE [Suspect]
     Indication: ANGINA PECTORIS
     Dosage: 750 mg, QD
     Route: 048
     Dates: start: 20120703
  2. RANOLAZINE [Suspect]
     Dosage: 375 mg, UNK
     Route: 048
  3. RANOLAZINE [Suspect]
     Dosage: 375 mg, QD
     Route: 048
     Dates: start: 20120822
  4. HCT [Suspect]
     Dosage: 25 mg, QD
     Dates: end: 20120802
  5. REPAGLINIDE [Concomitant]
     Dosage: UNK
     Dates: end: 20120802
  6. MOLSIDOMIN [Concomitant]
     Dosage: UNK
  7. ATACAND [Concomitant]
     Dosage: UNK
  8. AMLODIPINE [Concomitant]
     Dosage: UNK
  9. ASS [Concomitant]
     Dosage: UNK
  10. INEGY [Concomitant]
     Dosage: UNK
  11. LEVOTHYROXINE SODIUM [Concomitant]
     Dosage: UNK
  12. CABERGOLINE [Concomitant]
     Dosage: UNK
  13. TORASEMIDE [Concomitant]
     Dosage: UNK
     Dates: start: 20120815
  14. TRIHEXYPHENIDYL [Concomitant]
     Dosage: UNK
  15. ASTONIN H [Concomitant]

REACTIONS (1)
  - Hyponatraemia [Recovering/Resolving]
